FAERS Safety Report 12570307 (Version 1)
Quarter: 2016Q3

REPORT INFORMATION
  Report Type: Spontaneous
  Country: US (occurrence: US)
  Receive Date: 20160719
  Receipt Date: 20160719
  Transmission Date: 20161109
  Serious: Yes (Other)
  Sender: FDA-Public Use
  Company Number: US-ACTELION-A-US2016-139392

PATIENT
  Age: 62 Year
  Sex: Male

DRUGS (3)
  1. METOPROLOL. [Concomitant]
     Active Substance: METOPROLOL
     Dosage: UNK
  2. SILDENAFIL. [Concomitant]
     Active Substance: SILDENAFIL
     Dosage: 20 MG, TID
     Route: 048
  3. OPSUMIT [Suspect]
     Active Substance: MACITENTAN
     Indication: PULMONARY ARTERIAL HYPERTENSION
     Dosage: 10 MG, QD
     Route: 048
     Dates: start: 20160612

REACTIONS (2)
  - Hypotension [Not Recovered/Not Resolved]
  - Dialysis [Unknown]

NARRATIVE: CASE EVENT DATE: 201606
